FAERS Safety Report 7034916-7 (Version None)
Quarter: 2010Q4

REPORT INFORMATION
  Report Type: 
  Country: None (occurrence: None)
  Receive Date: 20101008
  Receipt Date: 20101002
  Transmission Date: 20110411
  Serious: No
  Sender: FDA-Public Use
  Company Number: US-PFIZER INC-2010125179

PATIENT
  Sex: Female
  Weight: 100.68 kg

DRUGS (23)
  1. CHANTIX [Suspect]
     Indication: SMOKING CESSATION THERAPY
     Dosage: 0.5 MG DAILY
     Route: 048
     Dates: start: 20100928
  2. CHANTIX [Suspect]
     Dosage: 0.5 MG, 2X/DAY
     Route: 048
  3. SPIRIVA [Concomitant]
     Indication: CHRONIC OBSTRUCTIVE PULMONARY DISEASE
     Dosage: DAILY
     Route: 045
  4. SPIRIVA [Concomitant]
     Indication: ASTHMA
  5. ALBUTEROL [Concomitant]
     Indication: CHRONIC OBSTRUCTIVE PULMONARY DISEASE
     Dosage: EVERY FOUR TO SIX HOURS
  6. ALBUTEROL [Concomitant]
     Indication: ASTHMA
  7. METFORMIN [Concomitant]
     Indication: DIABETES MELLITUS
     Dosage: 500 MG, 2X/DAY
  8. STARLIX [Concomitant]
     Indication: DIABETES MELLITUS
     Dosage: 120 MG, 3X/DAY
     Route: 048
  9. LISINOPRIL [Concomitant]
     Indication: HYPERTENSION
     Dosage: 30 MG DAILY
     Route: 048
  10. RANITIDINE [Concomitant]
     Indication: GASTRIC DISORDER
     Dosage: 150 MG, 2X/DAY
  11. MONTELUKAST SODIUM [Concomitant]
     Indication: ASTHMA
     Dosage: 10 MG DAILY
  12. CETIRIZINE [Concomitant]
     Indication: SINUSITIS
     Dosage: 10 MG, AS NEEDED
     Route: 048
  13. COREG [Concomitant]
     Indication: CARDIAC DISORDER
     Dosage: 25 MG, 2X/DAY
     Route: 048
  14. COREG [Concomitant]
     Indication: BLOOD PRESSURE ABNORMAL
  15. FUROSEMIDE [Concomitant]
     Indication: FLUID RETENTION
     Dosage: 20 MG, AS NEEDED
  16. DICLOFENAC [Concomitant]
     Indication: ARTHRITIS
     Dosage: 75 MG, 2X/DAY
  17. NASONEX [Concomitant]
     Indication: SINUSITIS
     Dosage: DAILY
     Route: 045
  18. CRESTOR [Concomitant]
     Indication: BLOOD CHOLESTEROL ABNORMAL
     Dosage: 10 MG DAILY
  19. LEVOTHYROXINE [Concomitant]
     Indication: THYROID DISORDER
     Dosage: 25 UG DAILY
  20. FLEXERIL [Concomitant]
     Indication: MUSCLE SPASMS
     Dosage: 10 MG, AS NEEDED
  21. AMITRIPTYLINE [Concomitant]
     Indication: DEPRESSION
     Dosage: 50 MG DAILY, AT BED TIME
  22. LORTAB [Concomitant]
     Indication: ARTHRITIS
     Dosage: 7.5/500, AS NEEDED
     Route: 048
  23. ACETYLSALICYLIC ACID [Concomitant]
     Indication: CARDIAC DISORDER
     Dosage: 325 MG DAILY
     Route: 048

REACTIONS (1)
  - ARTHROPOD BITE [None]
